FAERS Safety Report 21184642 (Version 1)
Quarter: 2022Q3

REPORT INFORMATION
  Report Type: Spontaneous
  Country: US (occurrence: None)
  Receive Date: 20220805
  Receipt Date: 20220805
  Transmission Date: 20221026
  Serious: No
  Sender: FDA-Public Use
  Company Number: None

PATIENT
  Sex: Male

DRUGS (2)
  1. CAPECITABINE [Suspect]
     Active Substance: CAPECITABINE
     Indication: Neuroendocrine tumour
     Dosage: FREQUENCY : TWICE A DAY;?TAKE 2 TABLETS BY MOUTH 2 TIMES DAILY FOR 2 WEEK{S) (DAYS 1-14 OF A 28 DAY
     Route: 048
     Dates: start: 20220514
  2. TEMOZOLOMIDE [Suspect]
     Active Substance: TEMOZOLOMIDE
     Indication: Neuroendocrine tumour
     Dosage: FREQUENCY : DAILY;? TAKE 2 CAPSULES BY MOUTH 1 TIME DAILY AT BEDTIME ON DAYS 10-14 OF A 28 DAY?CYCLE
     Route: 048
     Dates: start: 20220427

REACTIONS (2)
  - Drug ineffective [None]
  - Therapy cessation [None]
